FAERS Safety Report 23719180 (Version 3)
Quarter: 2024Q2

REPORT INFORMATION
  Report Type: Spontaneous
  Country: JP (occurrence: JP)
  Receive Date: 20240408
  Receipt Date: 20240611
  Transmission Date: 20240716
  Serious: Yes (Hospitalization, Disabling)
  Sender: FDA-Public Use
  Company Number: JP-DSJP-DSJ-2024-115076

PATIENT
  Age: 81 Year
  Sex: Female

DRUGS (2)
  1. EDOXABAN TOSYLATE [Suspect]
     Active Substance: EDOXABAN TOSYLATE
     Indication: Atrial fibrillation
     Dosage: UNK
     Route: 065
  2. ONDEXXYA [Suspect]
     Active Substance: ANDEXANET ALFA
     Indication: Spinal epidural haematoma
     Dosage: UNK
     Route: 065

REACTIONS (6)
  - Spinal epidural haematoma [Recovering/Resolving]
  - Cerebral infarction [Recovering/Resolving]
  - Splenic infarction [Recovering/Resolving]
  - Renal infarct [Recovering/Resolving]
  - Mesenteric artery embolism [Recovering/Resolving]
  - Tachycardia [Unknown]
